FAERS Safety Report 24253748 (Version 5)
Quarter: 2025Q1

REPORT INFORMATION
  Report Type: Spontaneous
  Country: GR (occurrence: GR)
  Receive Date: 20240827
  Receipt Date: 20250102
  Transmission Date: 20250408
  Serious: Yes (Death, Hospitalization, Other)
  Sender: TEVA
  Company Number: GR-SA-2017SA053784

PATIENT
  Age: 44 Year
  Sex: Male

DRUGS (15)
  1. PREDNISOLONE [Suspect]
     Active Substance: PREDNISOLONE
     Indication: Immunosuppressant drug therapy
     Dosage: 15 MILLIGRAM, QD
     Route: 065
  2. CEFTRIAXONE [Suspect]
     Active Substance: CEFTRIAXONE
     Indication: Antibiotic therapy
     Route: 065
  3. ERYTHROMYCIN [Suspect]
     Active Substance: ERYTHROMYCIN
     Indication: Antibiotic therapy
     Route: 065
  4. GANCICLOVIR [Suspect]
     Active Substance: GANCICLOVIR
     Indication: Antiviral prophylaxis
     Route: 065
  5. DAPSONE [Suspect]
     Active Substance: DAPSONE
     Indication: Product used for unknown indication
     Dosage: 100 MILLIGRAM, QD
     Route: 048
  6. MYCOPHENOLATE MOFETIL [Concomitant]
     Active Substance: MYCOPHENOLATE MOFETIL
     Indication: Renal transplant
     Dosage: 2 GRAM, QD
     Route: 065
  7. HYDROCORTISONE [Suspect]
     Active Substance: HYDROCORTISONE
     Indication: Pneumocystis jirovecii pneumonia
     Dosage: 375 MILLIGRAM, QD
     Route: 065
  8. HYDROCORTISONE [Suspect]
     Active Substance: HYDROCORTISONE
     Indication: Pneumocystis jirovecii pneumonia
     Dosage: 125 MILLIGRAM, Q8HR
     Route: 065
  9. PENTAMIDINE ISETHIONATE [Suspect]
     Active Substance: PENTAMIDINE ISETHIONATE
     Indication: Antibiotic therapy
     Dosage: QD
     Route: 042
  10. PENTAMIDINE ISETHIONATE [Suspect]
     Active Substance: PENTAMIDINE ISETHIONATE
     Indication: Antibiotic therapy
     Dosage: QD
     Route: 065
  11. SULFAMETHOXAZOLE\TRIMETHOPRIM [Suspect]
     Active Substance: SULFAMETHOXAZOLE\TRIMETHOPRIM
     Indication: Pneumocystis jirovecii pneumonia
     Route: 042
  12. SULFAMETHOXAZOLE\TRIMETHOPRIM [Suspect]
     Active Substance: SULFAMETHOXAZOLE\TRIMETHOPRIM
     Indication: Pneumocystis jirovecii pneumonia
     Dosage: QD
     Route: 065
  13. THYMOCYTE IMMUNE GLOBULIN NOS [Suspect]
     Active Substance: THYMOCYTE IMMUNE GLOBULIN NOS
     Indication: Renal transplant
     Dosage: UNK UNK, QD
     Route: 065
  14. THYMOCYTE IMMUNE GLOBULIN NOS [Suspect]
     Active Substance: THYMOCYTE IMMUNE GLOBULIN NOS
     Indication: Renal transplant
     Dosage: 1.5 MILLIGRAM/KILOGRAM, QD
     Route: 065
  15. CYCLOSPORINE [Suspect]
     Active Substance: CYCLOSPORINE
     Indication: Immunosuppressant drug therapy
     Dosage: 8 MILLIGRAM/KILOGRAM, QD
     Route: 065

REACTIONS (24)
  - Pneumothorax [Fatal]
  - Thoracotomy [Fatal]
  - Arrhythmia [Recovered/Resolved]
  - Treatment failure [Fatal]
  - Pulmonary cavitation [Fatal]
  - Pneumocystis jirovecii pneumonia [Fatal]
  - Lung abscess [Fatal]
  - Lung disorder [Fatal]
  - Torsade de pointes [Recovered/Resolved]
  - Dyspnoea [Fatal]
  - Pleurisy [Fatal]
  - Pyrexia [Fatal]
  - Hypercapnia [Fatal]
  - Gastrointestinal tube insertion [Unknown]
  - Condition aggravated [Fatal]
  - Pulmonary haemorrhage [Fatal]
  - Lung infiltration [Fatal]
  - Respiratory disorder [Fatal]
  - Blood lactate dehydrogenase abnormal [Fatal]
  - Acute lung injury [Fatal]
  - Lung lobectomy [Fatal]
  - General physical health deterioration [Fatal]
  - Bronchoalveolar lavage abnormal [Fatal]
  - Aspiration pleural cavity [Fatal]
